FAERS Safety Report 14579084 (Version 1)
Quarter: 2018Q1

REPORT INFORMATION
  Report Type: Spontaneous
  Country: SE (occurrence: SE)
  Receive Date: 20180227
  Receipt Date: 20180227
  Transmission Date: 20180509
  Serious: Yes (Other)
  Sender: FDA-Public Use
  Company Number: SE-NOVOPROD-586656

PATIENT
  Age: 53 Year
  Sex: Female

DRUGS (1)
  1. NOVOFEM [Suspect]
     Active Substance: ESTRADIOL HEMIHYDRATE\NORETHINDRONE ACETATE
     Indication: MENOPAUSAL SYMPTOMS
     Dosage: 1 TBL PER DAY
     Route: 065
     Dates: start: 20170525

REACTIONS (3)
  - Erythema multiforme [Unknown]
  - Paraesthesia [Unknown]
  - Rash pruritic [Unknown]

NARRATIVE: CASE EVENT DATE: 20170701
